FAERS Safety Report 5240090-X (Version None)
Quarter: 2007Q1

REPORT INFORMATION
  Report Type: 
  Country: None (occurrence: None)
  Receive Date: 20070216
  Receipt Date: 20070206
  Transmission Date: 20070707
  Serious: Yes (Death, Hospitalization, Other)
  Sender: FDA-Public Use
  Company Number: JP-PFIZER INC-2007010401

PATIENT
  Age: 85 Year
  Sex: Female

DRUGS (5)
  1. LIPITOR [Suspect]
     Indication: HYPERLIPIDAEMIA
     Dosage: DAILY DOSE:5MG
     Route: 048
     Dates: start: 20060922, end: 20070113
  2. SELBEX [Suspect]
     Dosage: TEXT:3 CAPSULES-FREQ:DAILY
     Route: 048
  3. TIMEPIDIUM BROMIDE [Suspect]
     Indication: GASTRIC DISORDER
     Route: 048
  4. MEQUITAZINE [Suspect]
     Indication: PRURITUS
     Dosage: DAILY DOSE:12MG-FREQ:DAILY
     Route: 048
  5. LOXOPROFEN SODIUM [Suspect]
     Dosage: FREQ:AS NEEDED
     Route: 048

REACTIONS (2)
  - COMA HEPATIC [None]
  - HEPATITIS FULMINANT [None]
